FAERS Safety Report 10557686 (Version 3)
Quarter: 2014Q4

REPORT INFORMATION
  Report Type: Spontaneous
  Country: US (occurrence: US)
  Receive Date: 20141031
  Receipt Date: 20141219
  Transmission Date: 20150529
  Serious: Yes (Hospitalization, Other)
  Sender: FDA-Public Use
  Company Number: US-PFIZER INC-2014300987

PATIENT
  Age: 82 Year
  Sex: Male
  Weight: 93 kg

DRUGS (1)
  1. TIKOSYN [Suspect]
     Active Substance: DOFETILIDE
     Indication: ATRIAL FIBRILLATION
     Dosage: 125 UG, 2X/DAY
     Route: 048
     Dates: start: 20121211, end: 20141106

REACTIONS (11)
  - Dementia Alzheimer^s type [Unknown]
  - Dysphagia [Not Recovered/Not Resolved]
  - Condition aggravated [Unknown]
  - Tachycardia [Unknown]
  - Decreased appetite [Unknown]
  - Delirium [Unknown]
  - Sepsis [Unknown]
  - Liver abscess [Unknown]
  - Pneumonia [Unknown]
  - Somnolence [Unknown]
  - Leukocytosis [Unknown]
